FAERS Safety Report 4446271-7 (Version None)
Quarter: 2004Q3

REPORT INFORMATION
  Report Type: 
  Country: None (occurrence: None)
  Receive Date: 20040907
  Receipt Date: 20040823
  Transmission Date: 20050211
  Serious: Yes (Other)
  Sender: FDA-Public Use
  Company Number: A0522937A

PATIENT
  Age: 37 Year
  Sex: Female
  Weight: 63.9572 kg

DRUGS (1)
  1. NICORETTE [Suspect]
     Indication: SMOKING CESSATION THERAPY
     Dosage: 2 MG/ TRANSBUCCAL
     Route: 002
     Dates: start: 20040801, end: 20040802

REACTIONS (4)
  - DIZZINESS [None]
  - FEELING ABNORMAL [None]
  - LOSS OF CONSCIOUSNESS [None]
  - VOMITING [None]
